FAERS Safety Report 9988957 (Version 2)
Quarter: 2014Q1

REPORT INFORMATION
  Report Type: Report from Study
  Country: PR (occurrence: PR)
  Receive Date: 20140310
  Receipt Date: 20140310
  Transmission Date: 20141002
  Serious: No
  Sender: FDA-Public Use
  Company Number: PR-ABBVIE-13P-131-1061123-00

PATIENT
  Age: 79 Year
  Sex: Female
  Weight: 54.48 kg

DRUGS (1)
  1. HUMIRA [Suspect]
     Indication: RHEUMATOID ARTHRITIS
     Route: 058
     Dates: start: 2012, end: 201306

REACTIONS (3)
  - Fatigue [Unknown]
  - Asthma [Recovered/Resolved]
  - Hypersensitivity [Recovered/Resolved]
